FAERS Safety Report 15082680 (Version 3)
Quarter: 2018Q3

REPORT INFORMATION
  Report Type: Spontaneous
  Country: NL (occurrence: NL)
  Receive Date: 20180628
  Receipt Date: 20180709
  Transmission Date: 20181010
  Serious: Yes (Other)
  Sender: FDA-Public Use
  Company Number: NL-TEVA-2018-NL-918688

PATIENT
  Age: 73 Year
  Sex: Female

DRUGS (9)
  1. DOXORUBICINE [Concomitant]
     Active Substance: DOXORUBICIN
     Route: 065
     Dates: start: 20180418
  2. GRANISETRON AUROBINDO 1 MG FILM COATED TABLET [Suspect]
     Active Substance: GRANISETRON
     Indication: NAUSEA
     Dosage: 2 DOSAGE FORMS DAILY;
     Route: 065
     Dates: start: 20180419
  3. RETINOL [Concomitant]
     Active Substance: RETINOL
     Route: 065
  4. PHENOBARBITAL. [Concomitant]
     Active Substance: PHENOBARBITAL
     Route: 065
  5. CYCLOPHOSPHAMIDE. [Concomitant]
     Active Substance: CYCLOPHOSPHAMIDE
     Route: 065
     Dates: start: 20180418
  6. MELATONINE [Concomitant]
     Active Substance: MELATONIN
     Route: 065
  7. MIDAZOLAM [Concomitant]
     Active Substance: MIDAZOLAM HYDROCHLORIDE
     Route: 065
  8. EMEND [Concomitant]
     Active Substance: APREPITANT
     Route: 065
  9. LEVETIRACETAM. [Concomitant]
     Active Substance: LEVETIRACETAM
     Route: 065

REACTIONS (1)
  - Epilepsy [Unknown]

NARRATIVE: CASE EVENT DATE: 20180530
